FAERS Safety Report 20365550 (Version 1)
Quarter: 2022Q1

REPORT INFORMATION
  Report Type: Spontaneous
  Country: FR (occurrence: FR)
  Receive Date: 20220122
  Receipt Date: 20220122
  Transmission Date: 20220424
  Serious: Yes (Hospitalization)
  Sender: FDA-Public Use
  Company Number: None

PATIENT
  Age: 43 Year
  Sex: Female

DRUGS (2)
  1. FLUOXETINE HYDROCHLORIDE [Suspect]
     Active Substance: FLUOXETINE HYDROCHLORIDE
     Indication: Product used for unknown indication
     Dosage: 40 MG/J
     Route: 048
  2. ALPRAZOLAM [Suspect]
     Active Substance: ALPRAZOLAM
     Indication: Product used for unknown indication
     Dosage: 0,5 MG LE MATIN 0,5 MG LE MIDI ET 1 MG LE SOIR
     Route: 048

REACTIONS (4)
  - Anhedonia [Unknown]
  - Drug dependence [Recovered/Resolved]
  - Asthenia [Unknown]
  - Sedation [Unknown]

NARRATIVE: CASE EVENT DATE: 20210511
